FAERS Safety Report 5977557-2 (Version None)
Quarter: 2008Q4

REPORT INFORMATION
  Report Type: 
  Country: None (occurrence: None)
  Receive Date: 20081201
  Receipt Date: 20081201
  Transmission Date: 20090506
  Serious: Yes (Life-Threatening)
  Sender: FDA-Public Use
  Company Number: None

PATIENT
  Age: 29 Year
  Sex: Male
  Weight: 189 kg

DRUGS (1)
  1. EQUATE NITE TIME MULTI SYMPTOMS COLD FLU RELIEF EXP07/10 8JOOK5 DISTRI [Suspect]
     Indication: INFLUENZA
     Dosage: 3TSP 3TSP PO
     Route: 048
     Dates: start: 20081124, end: 20081124

REACTIONS (3)
  - BODY TEMPERATURE DECREASED [None]
  - FEELING COLD [None]
  - HYPOTHERMIA [None]
